FAERS Safety Report 4317770-3 (Version None)
Quarter: 2004Q1

REPORT INFORMATION
  Report Type: 
  Country: None (occurrence: None)
  Receive Date: 20040315
  Receipt Date: 20040303
  Transmission Date: 20041129
  Serious: Yes (Life-Threatening, Hospitalization)
  Sender: FDA-Public Use
  Company Number: WAES 0403ZAF00002

PATIENT
  Age: 60 Year
  Sex: Male
  Weight: 95 kg

DRUGS (5)
  1. ASPIRIN [Concomitant]
     Indication: LIVEDO RETICULARIS
     Route: 048
     Dates: start: 20030401, end: 20040201
  2. VIOXX [Suspect]
     Indication: ISCHAEMIC LIMB PAIN
     Route: 048
     Dates: start: 20030601, end: 20040201
  3. VIOXX [Suspect]
     Indication: SKIN ULCER
     Route: 048
     Dates: start: 20030601, end: 20040201
  4. WARFARIN [Concomitant]
     Indication: ANTITHROMBIN III DEFICIENCY
     Route: 048
     Dates: start: 20010101
  5. WARFARIN [Concomitant]
     Indication: DEEP VEIN THROMBOSIS
     Route: 048
     Dates: start: 20010101

REACTIONS (2)
  - GASTRIC ULCER HAEMORRHAGE [None]
  - SHOCK [None]
